FAERS Safety Report 4497121-4 (Version None)
Quarter: 2004Q4

REPORT INFORMATION
  Report Type: 
  Country: None (occurrence: None)
  Receive Date: 20041110
  Receipt Date: 20040924
  Transmission Date: 20050328
  Serious: Yes (Hospitalization)
  Sender: FDA-Public Use
  Company Number: 200417288US

PATIENT
  Sex: Male
  Weight: 87.2 kg

DRUGS (14)
  1. DOCETAXEL [Suspect]
     Indication: BLADDER CANCER
     Route: 042
     Dates: start: 20040802
  2. CAPECITABINE [Suspect]
     Indication: BLADDER CANCER
     Route: 048
     Dates: start: 20040807
  3. COMPAZINE [Concomitant]
     Dates: start: 20040802
  4. BENADRYL /OLD FORM/ [Concomitant]
     Dates: start: 20040802
  5. DECADRON [Concomitant]
     Dates: start: 20040803
  6. DEXAMETHASONE [Concomitant]
     Dates: start: 20040816
  7. ARANESP [Concomitant]
     Dates: start: 20040816
  8. PREVACID [Concomitant]
  9. SENNA [Concomitant]
  10. ZOLOFT [Concomitant]
  11. SYNTHROID [Concomitant]
  12. VICODIN [Concomitant]
  13. MEGACE [Concomitant]
  14. HYPNOTICS AND SEDATIVES [Concomitant]

REACTIONS (28)
  - BACTERIA URINE IDENTIFIED [None]
  - BLOOD ALBUMIN DECREASED [None]
  - BLOOD ALKALINE PHOSPHATASE INCREASED [None]
  - CARDIAC FAILURE CONGESTIVE [None]
  - CRYPTOGENIC ORGANIZING PNEUMONIA [None]
  - DECREASED APPETITE [None]
  - DIARRHOEA [None]
  - DIZZINESS [None]
  - ELECTROCARDIOGRAM POOR R-WAVE PROGRESSION [None]
  - EMBOLISM [None]
  - HAEMOGLOBIN DECREASED [None]
  - HEADACHE [None]
  - INFECTION IN AN IMMUNOCOMPROMISED HOST [None]
  - INTERNATIONAL NORMALISED RATIO INCREASED [None]
  - LEUKAEMOID REACTION [None]
  - LEUKOCYTOSIS [None]
  - METASTASES TO LUNG [None]
  - OEDEMA PERIPHERAL [None]
  - ORTHOSTATIC HYPOTENSION [None]
  - PALLOR [None]
  - PARAESTHESIA [None]
  - PLATELET COUNT ABNORMAL [None]
  - PLEURAL EFFUSION [None]
  - PLEURITIC PAIN [None]
  - PULMONARY OEDEMA [None]
  - URINE KETONE BODY PRESENT [None]
  - WEIGHT INCREASED [None]
  - WHITE BLOOD CELLS URINE POSITIVE [None]
